FAERS Safety Report 24451571 (Version 1)
Quarter: 2024Q4

REPORT INFORMATION
  Report Type: Spontaneous
  Country: DE (occurrence: DE)
  Receive Date: 20241017
  Receipt Date: 20241017
  Transmission Date: 20250114
  Serious: Yes (Other)
  Sender: ANI
  Company Number: DE-ANIPHARMA-2024-DE-000127

PATIENT
  Age: 63 Year
  Sex: Male
  Weight: 100 kg

DRUGS (1)
  1. CANDESARTAN CILEXETIL [Suspect]
     Active Substance: CANDESARTAN CILEXETIL
     Indication: Product used for unknown indication
     Dosage: EVERY 2. DAY OF A CANDESARTAN, 16 MILLIGRAM QOD
     Route: 048
     Dates: start: 20211117

REACTIONS (9)
  - Epidermal necrosis [Unknown]
  - Dysaesthesia [Recovered/Resolved with Sequelae]
  - Skin fissures [Recovered/Resolved]
  - Pain in extremity [Recovered/Resolved]
  - Feeling hot [Recovered/Resolved]
  - Extremity necrosis [Recovered/Resolved]
  - Paraesthesia [Not Recovered/Not Resolved]
  - Inflammation [Recovered/Resolved]
  - Erythema [Recovered/Resolved with Sequelae]

NARRATIVE: CASE EVENT DATE: 20211206
